FAERS Safety Report 5917180-9 (Version None)
Quarter: 2008Q4

REPORT INFORMATION
  Report Type: 
  Country: None (occurrence: None)
  Receive Date: 20081014
  Receipt Date: 20081008
  Transmission Date: 20090506
  Serious: Yes (Hospitalization)
  Sender: FDA-Public Use
  Company Number: FR-BRISTOL-MYERS SQUIBB COMPANY-14365878

PATIENT

DRUGS (4)
  1. CETUXIMAB [Suspect]
     Indication: COLON CANCER
     Dosage: 1ST INFUSION:400 MG/M2. 5MG/ML
     Route: 042
  2. OXALIPLATIN [Suspect]
     Indication: COLON CANCER
     Route: 042
  3. FLUOROURACIL [Suspect]
     Indication: COLON CANCER
     Route: 042
  4. LEUCOVORIN CALCIUM [Suspect]
     Indication: COLON CANCER
     Route: 042

REACTIONS (1)
  - BRONCHITIS [None]
